FAERS Safety Report 7312150-0 (Version None)
Quarter: 2011Q1

REPORT INFORMATION
  Report Type: 
  Country: None (occurrence: None)
  Receive Date: 20110224
  Receipt Date: 20110217
  Transmission Date: 20110831
  Serious: Yes (Hospitalization)
  Sender: FDA-Public Use
  Company Number: A0731201A

PATIENT
  Age: 45 Year
  Sex: Male
  Weight: 88.6 kg

DRUGS (9)
  1. BENICAR [Concomitant]
  2. METFORMIN [Concomitant]
     Dates: start: 19990101
  3. LANTUS [Concomitant]
     Dates: start: 20050901
  4. VYTORIN [Concomitant]
  5. PROTONIX [Concomitant]
  6. AVANDAMET [Suspect]
     Route: 048
     Dates: start: 20010101, end: 20030501
  7. REGULAR INSULIN [Concomitant]
     Dates: start: 20050901
  8. AVANDIA [Suspect]
     Dosage: 8MG PER DAY
     Route: 048
     Dates: start: 20030501, end: 20070518
  9. PREVACID [Concomitant]

REACTIONS (5)
  - ARTERIOSCLEROSIS CORONARY ARTERY [None]
  - MYOCARDIAL ISCHAEMIA [None]
  - PULMONARY HYPERTENSION [None]
  - CARDIAC DISORDER [None]
  - MYOCARDIAL INFARCTION [None]
